FAERS Safety Report 6088817-1 (Version None)
Quarter: 2009Q1

REPORT INFORMATION
  Report Type: 
  Country: None (occurrence: None)
  Receive Date: 20090220
  Receipt Date: 20090220
  Transmission Date: 20090719
  Serious: No
  Sender: FDA-Public Use
  Company Number: None

PATIENT
  Sex: Female
  Weight: 113.3993 kg

DRUGS (2)
  1. PROAIR HFA [Suspect]
     Indication: ASTHMA
     Dosage: 90 MCG 2 PUFFS 4 TIMES INHAL
     Route: 055
     Dates: start: 20090212, end: 20090218
  2. PROAIR HFA [Suspect]
     Indication: ASTHMA
     Dosage: 90 MCG 2 PUFFS 4 TIMES INHAL
     Route: 055
     Dates: start: 20090218, end: 20090218

REACTIONS (2)
  - BRONCHOSPASM [None]
  - DRUG INEFFECTIVE [None]
